FAERS Safety Report 7212838-6 (Version None)
Quarter: 2010Q4

REPORT INFORMATION
  Report Type: 
  Country: None (occurrence: None)
  Receive Date: 20101126
  Receipt Date: 20101013
  Transmission Date: 20110411
  Serious: No
  Sender: FDA-Public Use
  Company Number: 316868

PATIENT
  Age: 82 Year
  Sex: Male

DRUGS (6)
  1. VICTOZA [Suspect]
     Indication: TYPE 2 DIABETES MELLITUS
     Dosage: 0.6 MG, QD, SUBCUTANEOUS ; 1.2 MG, QD, SUBCUTANEOUS ; 1.8 MG, QD, SUBCUTANEOUS
     Route: 058
     Dates: start: 20100901
  2. VICTOZA [Suspect]
     Indication: WEIGHT DECREASED
     Dosage: 0.6 MG, QD, SUBCUTANEOUS ; 1.2 MG, QD, SUBCUTANEOUS ; 1.8 MG, QD, SUBCUTANEOUS
     Route: 058
     Dates: start: 20100901
  3. VICTOZA [Suspect]
     Indication: TYPE 2 DIABETES MELLITUS
     Dosage: 0.6 MG, QD, SUBCUTANEOUS ; 1.2 MG, QD, SUBCUTANEOUS ; 1.8 MG, QD, SUBCUTANEOUS
     Route: 058
  4. VICTOZA [Suspect]
     Indication: WEIGHT DECREASED
     Dosage: 0.6 MG, QD, SUBCUTANEOUS ; 1.2 MG, QD, SUBCUTANEOUS ; 1.8 MG, QD, SUBCUTANEOUS
     Route: 058
  5. METFORMIN (METFORMIN) [Concomitant]
  6. LANTUS [Concomitant]

REACTIONS (5)
  - BLOOD GLUCOSE DECREASED [None]
  - BLOOD PRESSURE DECREASED [None]
  - DIARRHOEA [None]
  - DYSPHONIA [None]
  - NAUSEA [None]
